FAERS Safety Report 9733789 (Version 1)
Quarter: 2013Q4

REPORT INFORMATION
  Report Type: Spontaneous
  Country: US (occurrence: US)
  Receive Date: 20131205
  Receipt Date: 20131205
  Transmission Date: 20140711
  Serious: No
  Sender: FDA-Public Use
  Company Number: US-TEVA-446708USA

PATIENT
  Sex: Male

DRUGS (1)
  1. FENTANYL [Suspect]

REACTIONS (2)
  - Adverse event [Unknown]
  - Pain [Unknown]
